FAERS Safety Report 5016255-9 (Version None)
Quarter: 2006Q2

REPORT INFORMATION
  Report Type: 
  Country: None (occurrence: None)
  Receive Date: 20060414
  Receipt Date: 20060206
  Transmission Date: 20061013
  Serious: No
  Sender: FDA-Public Use
  Company Number: 2006SP000679

PATIENT
  Age: 52 Year
  Sex: Female
  Weight: 83.4619 kg

DRUGS (8)
  1. LUNESTA [Suspect]
     Indication: INSOMNIA
     Dosage: HS;ORAL
     Route: 048
     Dates: start: 20060101, end: 20060201
  2. MULTIVITAMIN [Concomitant]
  3. TEMAZEPAM [Concomitant]
  4. NEXIUM [Concomitant]
  5. METFORMIN HCL [Concomitant]
  6. LEXAPRO [Concomitant]
  7. CELEBREX [Concomitant]
  8. OXYCONTIN [Concomitant]

REACTIONS (2)
  - DYSGEUSIA [None]
  - INSOMNIA [None]
